FAERS Safety Report 16654552 (Version 1)
Quarter: 2019Q3

REPORT INFORMATION
  Report Type: Spontaneous
  Country: US (occurrence: US)
  Receive Date: 20190801
  Receipt Date: 20190801
  Transmission Date: 20191004
  Serious: No
  Sender: FDA-Public Use
  Company Number: US-009507513-1907USA014562

PATIENT
  Age: 18 Year
  Sex: Female
  Weight: 58.5 kg

DRUGS (1)
  1. NEXPLANON [Suspect]
     Active Substance: ETONOGESTREL
     Indication: CONTRACEPTION
     Dosage: EVERY THREE YEARS, ROUTE WAS REPORTED AS LEFT /IMPLANT
     Route: 059
     Dates: start: 20190219

REACTIONS (2)
  - Menorrhagia [Not Recovered/Not Resolved]
  - Muscle spasms [Not Recovered/Not Resolved]

NARRATIVE: CASE EVENT DATE: 2019
